FAERS Safety Report 5392508-X (Version None)
Quarter: 2007Q3

REPORT INFORMATION
  Report Type: 
  Country: None (occurrence: None)
  Receive Date: 20070720
  Receipt Date: 20070711
  Transmission Date: 20080115
  Serious: Yes (Death, Other)
  Sender: FDA-Public Use
  Company Number: JP-SANOFI-SYNTHELABO-A01200705589

PATIENT
  Sex: Male
  Weight: 71 kg

DRUGS (9)
  1. DEXAMETHASONE SODIUM PHOSPHATE [Concomitant]
     Indication: PREMEDICATION
     Route: 042
     Dates: start: 20061114, end: 20070406
  2. GRANISETRON  HCL [Concomitant]
     Indication: PREMEDICATION
     Route: 042
     Dates: start: 20061114, end: 20070406
  3. ISOVORIN [Suspect]
     Dosage: FOLFOX-4, 150 MG/ BODY = 84.3 MG/M2 INFUSION ON DAYS 1 AND 2
     Route: 041
     Dates: start: 20061114, end: 20061115
  4. ISOVORIN [Suspect]
     Dosage: FOLFOX-4, 125 MG/ BODY = 70.2 MG/M2 INFUSION
     Route: 042
     Dates: start: 20061219, end: 20061220
  5. ISOVORIN [Suspect]
     Dosage: FOLFOX-6, 250 MG/ BODY = 140.4 MG/M2 INFUSION
     Route: 042
     Dates: start: 20070406, end: 20070406
  6. FLUOROURACIL [Suspect]
     Dosage: FOLFOX-4, 600 MG/ BODY = 337.1 MG/M2 BOLUS THEN 1000 MG/ BODY = 561.8 MG/M2 AS CONTINUOUS INFUSION
     Route: 041
     Dates: start: 20061114, end: 20061115
  7. FLUOROURACIL [Suspect]
     Dosage: FOLFOX-6, 500 MG/ BODY = 280.9 MG/M2 BOLUS THEN 3000 MG/ BODY = 1685.4 MG/M2 AS CONTINUOUS INFUSION
     Route: 042
     Dates: start: 20070406, end: 20070406
  8. OXALIPLATIN [Suspect]
     Indication: COLON CANCER
     Dosage: FOLFOX-4, 140 MG/ BODY = 78.7 MG/M2
     Route: 042
     Dates: start: 20061114, end: 20061114
  9. OXALIPLATIN [Suspect]
     Dosage: FOLFOX-6, 120 MG/ BODY = 67.4 MG/M2
     Route: 042
     Dates: start: 20070406, end: 20070406

REACTIONS (2)
  - NEUTROPENIA [None]
  - RENAL FAILURE ACUTE [None]
